FAERS Safety Report 11871096 (Version 3)
Quarter: 2016Q1

REPORT INFORMATION
  Report Type: Spontaneous
  Country: US (occurrence: US)
  Receive Date: 20151228
  Receipt Date: 20160224
  Transmission Date: 20160526
  Serious: Yes (Other)
  Sender: FDA-Public Use
  Company Number: US-BAYER-2015-492450

PATIENT
  Age: 32 Year
  Sex: Female

DRUGS (1)
  1. MIRENA [Suspect]
     Active Substance: LEVONORGESTREL
     Indication: CONTRACEPTION
     Dosage: 20 MCG/24HR, CONT
     Route: 015
     Dates: start: 20150506, end: 20151210

REACTIONS (4)
  - Pregnancy with contraceptive device [Recovering/Resolving]
  - Abdominal pain lower [None]
  - Haemorrhage in pregnancy [None]
  - Drug ineffective [None]

NARRATIVE: CASE EVENT DATE: 2015
